FAERS Safety Report 9146515 (Version 1)
Quarter: 2013Q1

REPORT INFORMATION
  Report Type: Spontaneous
  Country: US (occurrence: US)
  Receive Date: 20130307
  Receipt Date: 20130307
  Transmission Date: 20140127
  Serious: Yes (Other)
  Sender: FDA-Public Use
  Company Number: US-GLAXOSMITHKLINE-A0990578A

PATIENT
  Sex: Male

DRUGS (6)
  1. ROPINIROLE [Suspect]
     Indication: RESTLESS LEGS SYNDROME
     Dosage: 2MG THREE TIMES PER DAY
     Route: 048
  2. SINEMET [Concomitant]
  3. BLOOD PRESSURE MEDICATION [Concomitant]
  4. ALLOPURINOL [Concomitant]
  5. DIGOXIN [Concomitant]
  6. CONCURRENT MEDICATIONS [Concomitant]

REACTIONS (2)
  - Hallucination [Recovered/Resolved]
  - Therapeutic response decreased [Recovered/Resolved]
